FAERS Safety Report 4575266-8 (Version None)
Quarter: 2005Q1

REPORT INFORMATION
  Report Type: 
  Country: None (occurrence: None)
  Receive Date: 20050209
  Receipt Date: 20030711
  Transmission Date: 20050727
  Serious: Yes (Hospitalization)
  Sender: FDA-Public Use
  Company Number: GR-ABBOTT-03P-066-0224169-00

PATIENT
  Age: 65 Year
  Sex: Female

DRUGS (4)
  1. KALETRA [Suspect]
     Indication: HIV INFECTION
     Dosage: 400 MG/100 MG
     Route: 048
     Dates: start: 20020301, end: 20030129
  2. LAMIVUDINE [Concomitant]
     Indication: HIV INFECTION
     Route: 048
     Dates: start: 20020301
  3. ZIDOVUDINE [Concomitant]
     Indication: HIV INFECTION
     Route: 048
     Dates: start: 20020301
  4. NITROGLYCERIN [Concomitant]
     Indication: PULMONARY HYPERTENSION
     Route: 048
     Dates: start: 20000101

REACTIONS (5)
  - DYSARTHRIA [None]
  - DYSPHAGIA [None]
  - FAT REDISTRIBUTION [None]
  - MACROGLOSSIA [None]
  - ORAL CANDIDIASIS [None]
